FAERS Safety Report 24613312 (Version 1)
Quarter: 2024Q4

REPORT INFORMATION
  Report Type: Spontaneous
  Country: US (occurrence: US)
  Receive Date: 20241113
  Receipt Date: 20241113
  Transmission Date: 20250115
  Serious: Yes (Disabling, Other)
  Sender: COSETTE PHARMACEUTICALS INC
  Company Number: US-COSETTE-CP2024US000329

PATIENT
  Age: 54 Year
  Sex: Female

DRUGS (4)
  1. CLOBETASOL PROPIONATE [Suspect]
     Active Substance: CLOBETASOL PROPIONATE
     Indication: Lichen sclerosus
     Route: 065
  2. ESTRADIOL [Suspect]
     Active Substance: ESTRADIOL
     Indication: Lichen sclerosus
     Route: 065
  3. PROGESTERONE [Suspect]
     Active Substance: PROGESTERONE
     Indication: Lichen sclerosus
     Route: 065
  4. ELIGLUSTAT [Suspect]
     Active Substance: ELIGLUSTAT
     Indication: Gaucher^s disease
     Dosage: DOSE OF 84 (UNITE NOT PROVIDED)
     Route: 048
     Dates: start: 20210719

REACTIONS (15)
  - Squamous cell carcinoma [Unknown]
  - Loss of personal independence in daily activities [Unknown]
  - Impaired work ability [Unknown]
  - Nervousness [Unknown]
  - Laziness [Unknown]
  - Feeling abnormal [Unknown]
  - Osteopenia [Unknown]
  - Intermenstrual bleeding [Unknown]
  - Lichen sclerosus [Unknown]
  - Thyroid disorder [Unknown]
  - Muscle spasms [Unknown]
  - Vertigo [Unknown]
  - Fatigue [Unknown]
  - Cyanosis [Unknown]
  - Product use in unapproved indication [Unknown]

NARRATIVE: CASE EVENT DATE: 20230101
